FAERS Safety Report 9479317 (Version 1)
Quarter: 2013Q3

REPORT INFORMATION
  Report Type: Report from Study
  Country: US (occurrence: US)
  Receive Date: 20130827
  Receipt Date: 20130827
  Transmission Date: 20140515
  Serious: Yes (Hospitalization, Other)
  Sender: FDA-Public Use
  Company Number: US-ABBOTT-13P-163-1135890-00

PATIENT
  Sex: Male

DRUGS (9)
  1. HUMIRA [Suspect]
     Indication: PSORIATIC ARTHROPATHY
     Dates: start: 201107
  2. HUMIRA [Suspect]
     Dosage: PRE-FILLED SYRINGE
  3. ALLOPURINOL [Concomitant]
     Indication: PRODUCT USED FOR UNKNOWN INDICATION
  4. COLCRYS [Concomitant]
     Indication: PRODUCT USED FOR UNKNOWN INDICATION
  5. TRICOR [Concomitant]
     Indication: PRODUCT USED FOR UNKNOWN INDICATION
  6. RANEXA [Concomitant]
     Indication: PRODUCT USED FOR UNKNOWN INDICATION
  7. LASIX [Concomitant]
     Indication: PRODUCT USED FOR UNKNOWN INDICATION
  8. LISINOPRIL [Concomitant]
     Indication: PRODUCT USED FOR UNKNOWN INDICATION
     Dosage: 20/12.5 MG
  9. CRESTOR [Concomitant]
     Indication: PRODUCT USED FOR UNKNOWN INDICATION

REACTIONS (6)
  - Ulcer haemorrhage [Not Recovered/Not Resolved]
  - Nasal septum deviation [Unknown]
  - Blood glucose increased [Unknown]
  - Injection site pain [Unknown]
  - Pain in extremity [Unknown]
  - Gait disturbance [Unknown]
